FAERS Safety Report 20336317 (Version 3)
Quarter: 2022Q1

REPORT INFORMATION
  Report Type: Spontaneous
  Country: GR (occurrence: GR)
  Receive Date: 20220114
  Receipt Date: 20220125
  Transmission Date: 20220424
  Serious: Yes (Hospitalization)
  Sender: FDA-Public Use
  Company Number: GR-ALXN-A202200291

PATIENT
  Age: 9 Year
  Sex: Male

DRUGS (3)
  1. SOLIRIS [Suspect]
     Active Substance: ECULIZUMAB
     Indication: Atypical haemolytic uraemic syndrome
     Dosage: 600 MG, QW
     Route: 042
     Dates: start: 20211214, end: 20211228
  2. SOLIRIS [Suspect]
     Active Substance: ECULIZUMAB
     Dosage: 600 MG, QW
     Route: 042
  3. AMOXIL                             /00249601/ [Concomitant]
     Indication: Prophylaxis
     Dosage: 250 MG, BID FOR THE LAST 10 DAYS
     Route: 065

REACTIONS (2)
  - Transaminases increased [Recovering/Resolving]
  - Abdominal pain [Recovered/Resolved]

NARRATIVE: CASE EVENT DATE: 20211228
